FAERS Safety Report 18511655 (Version 1)
Quarter: 2020Q4

REPORT INFORMATION
  Report Type: Report from Study
  Country: MX (occurrence: MX)
  Receive Date: 20201117
  Receipt Date: 20201117
  Transmission Date: 20210114
  Serious: Yes (Hospitalization)
  Sender: FDA-Public Use
  Company Number: NVSC2020MX305163

PATIENT
  Age: 60 Year
  Sex: Female

DRUGS (1)
  1. TASIGNA [Suspect]
     Active Substance: NILOTINIB
     Indication: CHRONIC MYELOID LEUKAEMIA
     Dosage: 400 MG, Q12H
     Route: 048
     Dates: start: 2019

REACTIONS (2)
  - Chronic kidney disease [Not Recovered/Not Resolved]
  - Post procedural complication [Recovered/Resolved]

NARRATIVE: CASE EVENT DATE: 202003
